FAERS Safety Report 8068358-2 (Version None)
Quarter: 2012Q1

REPORT INFORMATION
  Report Type: 
  Country: None (occurrence: None)
  Receive Date: 20120124
  Receipt Date: 20111019
  Transmission Date: 20120608
  Serious: No
  Sender: FDA-Public Use
  Company Number: US-AMGEN-USASP2011054103

PATIENT
  Age: 66 Year
  Sex: Female

DRUGS (5)
  1. CALCITRIOL [Concomitant]
     Dosage: UNK
  2. MULTI-VITAMIN [Concomitant]
     Dosage: UNK
  3. HYDROCHLOROTHIAZIDE [Concomitant]
     Dosage: UNK
  4. AMILORIDE HYDROCHLORIDE [Concomitant]
     Dosage: UNK
  5. PROLIA [Suspect]
     Indication: OSTEOPOROSIS POSTMENOPAUSAL
     Dosage: 60 MG, Q6MO
     Dates: start: 20110501

REACTIONS (1)
  - URINARY TRACT INFECTION [None]
